FAERS Safety Report 7704830-X (Version None)
Quarter: 2011Q3

REPORT INFORMATION
  Report Type: 
  Country: None (occurrence: None)
  Receive Date: 20110823
  Receipt Date: 20110818
  Transmission Date: 20111222
  Serious: Yes (Hospitalization, Other)
  Sender: FDA-Public Use
  Company Number: US-PFIZER INC-2011129684

PATIENT
  Sex: Male

DRUGS (1)
  1. CHANTIX [Suspect]
     Indication: SMOKING CESSATION THERAPY
     Dosage: 0.5MG AND 1MG
     Dates: start: 20061201, end: 20070201

REACTIONS (5)
  - BLOOD PRESSURE ABNORMAL [None]
  - ANXIETY [None]
  - PANIC ATTACK [None]
  - AGGRESSION [None]
  - DEPRESSION [None]
